FAERS Safety Report 9958071 (Version 2)
Quarter: 2014Q1

REPORT INFORMATION
  Report Type: Report from Study
  Country: US (occurrence: US)
  Receive Date: 20140304
  Receipt Date: 20140304
  Transmission Date: 20141002
  Serious: No
  Sender: FDA-Public Use
  Company Number: US-ABBVIE-13P-163-1075032-00

PATIENT
  Sex: Female

DRUGS (2)
  1. HUMIRA [Suspect]
     Indication: RHEUMATOID ARTHRITIS
     Route: 058
     Dates: start: 20120507, end: 201212
  2. HUMIRA [Suspect]
     Dates: start: 20130520

REACTIONS (2)
  - Laboratory test abnormal [Recovered/Resolved]
  - Influenza [Recovered/Resolved]
